FAERS Safety Report 17029842 (Version 1)
Quarter: 2019Q4

REPORT INFORMATION
  Report Type: Report from Study
  Country: BE (occurrence: BE)
  Receive Date: 20191114
  Receipt Date: 20191114
  Transmission Date: 20200122
  Serious: Yes (Other)
  Sender: FDA-Public Use
  Company Number: PHHY2015BE071152

PATIENT
  Age: 49 Year
  Sex: Female

DRUGS (4)
  1. GILENYA [Suspect]
     Active Substance: FINGOLIMOD HYDROCHLORIDE
     Dosage: UNK, QD
     Route: 048
     Dates: start: 20190711
  2. GILENYA [Suspect]
     Active Substance: FINGOLIMOD HYDROCHLORIDE
     Indication: MULTIPLE SCLEROSIS
     Dosage: UNK, QD
     Route: 048
     Dates: start: 20130108, end: 20190710
  3. IMURAN [Suspect]
     Active Substance: AZATHIOPRINE
     Indication: PRODUCT USED FOR UNKNOWN INDICATION
     Route: 065
  4. VITAMIN D [Concomitant]
     Active Substance: VITAMIN D NOS
     Indication: PROPHYLAXIS
     Dosage: UNK
     Route: 065
     Dates: start: 20160107

REACTIONS (14)
  - Gamma-glutamyltransferase increased [Unknown]
  - Herpes zoster [Recovered/Resolved]
  - White blood cell count decreased [Unknown]
  - Periodontitis [Unknown]
  - Depression [Unknown]
  - Colitis microscopic [Unknown]
  - Blood cholesterol increased [Unknown]
  - Ophthalmic herpes zoster [Recovering/Resolving]
  - Blister [Unknown]
  - Hyperlipidaemia [Unknown]
  - Eye pruritus [Not Recovered/Not Resolved]
  - Tendonitis [Unknown]
  - Lymphopenia [Recovering/Resolving]
  - Low density lipoprotein increased [Unknown]

NARRATIVE: CASE EVENT DATE: 20131213
